FAERS Safety Report 9743170 (Version 1)
Quarter: 2013Q4

REPORT INFORMATION
  Report Type: Spontaneous
  Country: US (occurrence: US)
  Receive Date: 20131210
  Receipt Date: 20131210
  Transmission Date: 20140711
  Serious: No
  Sender: FDA-Public Use
  Company Number: US-GILEAD-2009-0024924

PATIENT
  Sex: Female
  Weight: 81.65 kg

DRUGS (16)
  1. LETAIRIS [Suspect]
     Indication: PULMONARY ARTERIAL HYPERTENSION
     Route: 048
     Dates: start: 20090902
  2. BACTRIM DS [Concomitant]
  3. CELEBREX [Concomitant]
  4. TOPAMAX [Concomitant]
  5. MELOXICAM [Concomitant]
  6. SYNTHROID [Concomitant]
  7. CRESTOR [Concomitant]
  8. ALPHAGAN P [Concomitant]
  9. DIOVAN [Concomitant]
  10. ELIDEL 1% [Concomitant]
  11. PROVENTIL [Concomitant]
  12. CITALOPRAM HBR [Concomitant]
  13. HCTZ [Concomitant]
  14. CORDRAN SP [Concomitant]
  15. LUNESTA [Concomitant]
  16. ASPIRIN [Concomitant]

REACTIONS (1)
  - Palpitations [Unknown]
